FAERS Safety Report 7167841-1 (Version None)
Quarter: 2010Q4

REPORT INFORMATION
  Report Type: 
  Country: None (occurrence: None)
  Receive Date: 20101216
  Receipt Date: 20101129
  Transmission Date: 20110411
  Serious: No
  Sender: FDA-Public Use
  Company Number: US-B.I. PHARMACEUTICALS,INC./RIDGEFIELD-2010-BP-13456BP

PATIENT
  Age: 81 Year
  Sex: Female

DRUGS (8)
  1. PRADAXA [Suspect]
     Indication: ATRIAL FIBRILLATION
     Dosage: 300 MG
     Route: 048
     Dates: start: 20101119
  2. LASIX [Concomitant]
     Indication: CARDIAC FAILURE CONGESTIVE
  3. POTASSIUM CHLORIDE [Concomitant]
     Indication: CARDIAC FAILURE CONGESTIVE
  4. METOPROLOL [Concomitant]
     Indication: HYPERTENSION
  5. SPIRONOLACTONE [Concomitant]
     Indication: ATRIAL FIBRILLATION
  6. DIGOXIN [Concomitant]
     Indication: ATRIAL FIBRILLATION
  7. LEVOTHROID [Concomitant]
     Indication: THYROID DISORDER
  8. DOXYCYCLINE [Concomitant]
     Indication: PNEUMONIA

REACTIONS (5)
  - ABDOMINAL DISCOMFORT [None]
  - CONSTIPATION [None]
  - DYSPEPSIA [None]
  - HYPOTENSION [None]
  - THROAT TIGHTNESS [None]
